FAERS Safety Report 11433522 (Version 1)
Quarter: 2015Q3

REPORT INFORMATION
  Report Type: Report from Study
  Country: US (occurrence: US)
  Receive Date: 20150831
  Receipt Date: 20150831
  Transmission Date: 20151125
  Serious: Yes (Hospitalization, Other)
  Sender: FDA-Public Use
  Company Number: PHEH2015US009980

PATIENT
  Age: 56 Year
  Sex: Male

DRUGS (1)
  1. GILENYA [Suspect]
     Active Substance: FINGOLIMOD HYDROCHLORIDE
     Indication: MULTIPLE SCLEROSIS
     Dosage: 0.5 MG, QD
     Route: 048
     Dates: start: 20150227

REACTIONS (7)
  - Prostate infection [Recovered/Resolved]
  - Sinus congestion [Not Recovered/Not Resolved]
  - Ocular hyperaemia [Not Recovered/Not Resolved]
  - Nasal congestion [Unknown]
  - Urinary tract infection [Unknown]
  - Eyelid margin crusting [Unknown]
  - Eye irritation [Unknown]

NARRATIVE: CASE EVENT DATE: 20150319
